FAERS Safety Report 5413350-7 (Version None)
Quarter: 2007Q3

REPORT INFORMATION
  Report Type: 
  Country: None (occurrence: None)
  Receive Date: 20070814
  Receipt Date: 20070807
  Transmission Date: 20080115
  Serious: Yes (Hospitalization)
  Sender: FDA-Public Use
  Company Number: US-BRISTOL-MYERS SQUIBB COMPANY-13871546

PATIENT
  Age: 64 Year
  Sex: Female

DRUGS (10)
  1. METFORMIN HCL [Suspect]
     Indication: DIABETES MELLITUS
     Route: 048
     Dates: start: 20061012, end: 20070207
  2. BLINDED: LIRAGLUTIDE [Suspect]
     Dates: start: 20061214, end: 20070207
  3. BLINDED: PLACEBO [Suspect]
     Dates: start: 20061214, end: 20070207
  4. AVANDIA [Suspect]
     Indication: DIABETES MELLITUS
     Route: 048
     Dates: start: 20061012, end: 20070207
  5. WARFARIN SODIUM [Concomitant]
  6. CRESTOR [Concomitant]
  7. FUROSEMIDE [Concomitant]
  8. HYZAAR [Concomitant]
  9. TOPROL-XL [Concomitant]
  10. DIGOXIN [Concomitant]

REACTIONS (1)
  - CARDIAC FAILURE CONGESTIVE [None]
